FAERS Safety Report 23798559 (Version 1)
Quarter: 2024Q2

REPORT INFORMATION
  Report Type: Spontaneous
  Country: US (occurrence: None)
  Receive Date: 20240426
  Receipt Date: 20240426
  Transmission Date: 20240716
  Serious: Yes (Hospitalization)
  Sender: FDA-Public Use
  Company Number: None

PATIENT
  Age: 75 Year
  Sex: Male

DRUGS (3)
  1. WARFARIN [Suspect]
     Active Substance: WARFARIN
     Indication: Atrial fibrillation
     Dosage: 5 MG DAILY ORAL
     Route: 048
     Dates: start: 20220913, end: 20240423
  2. KETOCONAZOLE [Concomitant]
     Active Substance: KETOCONAZOLE
     Dates: start: 20240315, end: 20240415
  3. VALACYCLOVIR [Concomitant]
     Active Substance: VALACYCLOVIR HYDROCHLORIDE
     Dates: start: 20240315, end: 20240322

REACTIONS (6)
  - International normalised ratio abnormal [None]
  - Skin infection [None]
  - Herpes zoster [None]
  - Fall [None]
  - Intra-abdominal haematoma [None]
  - Drug interaction [None]

NARRATIVE: CASE EVENT DATE: 20240401
